FAERS Safety Report 11639826 (Version 5)
Quarter: 2016Q4

REPORT INFORMATION
  Report Type: Report from Study
  Country: JP (occurrence: JP)
  Receive Date: 20151019
  Receipt Date: 20161221
  Transmission Date: 20170206
  Serious: Yes (Hospitalization)
  Sender: FDA-Public Use
  Company Number: JP-EISAI MEDICAL RESEARCH-EC-2015-011200

PATIENT
  Age: 69 Year
  Sex: Male
  Weight: 51 kg

DRUGS (15)
  1. LENVIMA [Suspect]
     Active Substance: LENVATINIB
     Route: 048
     Dates: start: 20150907, end: 20150916
  2. THYRADIN S [Concomitant]
     Active Substance: LEVOTHYROXINE SODIUM
  3. CLEANAL [Concomitant]
     Active Substance: FUDOSTEINE
  4. LENVIMA [Suspect]
     Active Substance: LENVATINIB
     Indication: MEDULLARY THYROID CANCER
     Route: 048
     Dates: start: 20150727, end: 20150906
  5. ROCALTROL [Concomitant]
     Active Substance: CALCITRIOL
  6. MAGLAX [Concomitant]
     Active Substance: MAGNESIUM OXIDE
  7. REBAMIPIDE [Concomitant]
     Active Substance: REBAMIPIDE
  8. LENVIMA [Suspect]
     Active Substance: LENVATINIB
     Dosage: SUSPENDED FOR ABOUT 5 - 8 DAYS WHEN PAIN OCCURRED
     Route: 048
     Dates: start: 20160613, end: 2016
  9. SLOW-K [Concomitant]
     Active Substance: POTASSIUM CHLORIDE
  10. SYMBICORT [Concomitant]
     Active Substance: BUDESONIDE\FORMOTEROL FUMARATE DIHYDRATE
  11. LENVIMA [Suspect]
     Active Substance: LENVATINIB
     Route: 048
     Dates: start: 20150917, end: 20151004
  12. LENVIMA [Suspect]
     Active Substance: LENVATINIB
     Route: 048
     Dates: start: 20151216, end: 2016
  13. LENVIMA [Suspect]
     Active Substance: LENVATINIB
     Route: 048
     Dates: start: 2016
  14. MUCOSOLVAN L [Concomitant]
     Active Substance: AMBROXOL HYDROCHLORIDE
  15. TRAMCET [Concomitant]
     Active Substance: ACETAMINOPHEN\TRAMADOL

REACTIONS (2)
  - Diarrhoea [Recovered/Resolved]
  - Cholecystitis acute [Recovering/Resolving]

NARRATIVE: CASE EVENT DATE: 20151005
